FAERS Safety Report 25246335 (Version 1)
Quarter: 2025Q2

REPORT INFORMATION
  Report Type: Spontaneous
  Country: CH (occurrence: CH)
  Receive Date: 20250428
  Receipt Date: 20250428
  Transmission Date: 20250716
  Serious: Yes (Other)
  Sender: SANDOZ
  Company Number: None

PATIENT
  Age: 82 Year
  Sex: Female
  Weight: 58 kg

DRUGS (2)
  1. RIMSTAR [Suspect]
     Active Substance: ETHAMBUTOL\ISONIAZID\PYRAZINAMIDE\RIFAMYCIN
     Indication: Lymph node tuberculosis
     Route: 048
     Dates: start: 20230523, end: 20230602
  2. VITAMIN B6 [Concomitant]
     Active Substance: PYRIDOXINE HYDROCHLORIDE
     Indication: Drug toxicity prophylaxis
     Route: 048
     Dates: start: 20230523, end: 20230602

REACTIONS (2)
  - Drug-induced liver injury [Recovering/Resolving]
  - Rash [Recovering/Resolving]

NARRATIVE: CASE EVENT DATE: 20230529
